FAERS Safety Report 11756979 (Version 2)
Quarter: 2015Q4

REPORT INFORMATION
  Report Type: Spontaneous
  Country: US (occurrence: US)
  Receive Date: 20151120
  Receipt Date: 20151231
  Transmission Date: 20160304
  Serious: Yes (Hospitalization, Other)
  Sender: FDA-Public Use
  Company Number: US-009507513-1511USA008519

PATIENT
  Age: 73 Year
  Sex: Male

DRUGS (1)
  1. TICE BCG [Suspect]
     Active Substance: BACILLUS CALMETTE-GUERIN SUBSTRAIN TICE LIVE ANTIGEN
     Indication: BLADDER CANCER
     Dosage: PATIENT RECEIVED 3 CYCLES
     Route: 043

REACTIONS (2)
  - Disseminated Bacillus Calmette-Guerin infection [Not Recovered/Not Resolved]
  - Pneumonia [Not Recovered/Not Resolved]
